FAERS Safety Report 4287395-7 (Version None)
Quarter: 2004Q1

REPORT INFORMATION
  Report Type: 
  Country: None (occurrence: None)
  Receive Date: 20040209
  Receipt Date: 20030619
  Transmission Date: 20041129
  Serious: No
  Sender: FDA-Public Use
  Company Number: US-GLAXOSMITHKLINE-A0413243A

PATIENT
  Sex: Female

DRUGS (3)
  1. PAXIL CR [Suspect]
     Indication: IRRITABLE BOWEL SYNDROME
     Dosage: 12.5MG PER DAY
     Route: 048
     Dates: start: 20030611, end: 20030618
  2. PAXIL [Suspect]
     Route: 048
  3. NEXIUM [Concomitant]

REACTIONS (2)
  - DIZZINESS [None]
  - NAUSEA [None]
